FAERS Safety Report 10022749 (Version 1)
Quarter: 2014Q1

REPORT INFORMATION
  Report Type: Spontaneous
  Country: US (occurrence: US)
  Receive Date: 20140319
  Receipt Date: 20140319
  Transmission Date: 20141002
  Serious: Yes (Other)
  Sender: FDA-Public Use
  Company Number: US-ACTAVIS-2014-04934

PATIENT
  Sex: Male

DRUGS (1)
  1. FENTANYL-100 (WATSON LABORATORIES) [Suspect]
     Indication: PRODUCT USED FOR UNKNOWN INDICATION
     Route: 065

REACTIONS (5)
  - Suicidal ideation [Unknown]
  - Withdrawal syndrome [Unknown]
  - Drug withdrawal convulsions [Unknown]
  - Foaming at mouth [Unknown]
  - Eye movement disorder [Unknown]
